FAERS Safety Report 7386779-8 (Version None)
Quarter: 2011Q1

REPORT INFORMATION
  Report Type: 
  Country: None (occurrence: None)
  Receive Date: 20110331
  Receipt Date: 20110325
  Transmission Date: 20110831
  Serious: Yes (Other)
  Sender: FDA-Public Use
  Company Number: B0709609A

PATIENT
  Age: 62 Year
  Sex: Female

DRUGS (1)
  1. ALLI [Suspect]
     Route: 048
     Dates: end: 20100801

REACTIONS (2)
  - BREAST CANCER [None]
  - BREAST MASS [None]
